FAERS Safety Report 4278280-5 (Version None)
Quarter: 2004Q1

REPORT INFORMATION
  Report Type: 
  Country: None (occurrence: None)
  Receive Date: 20040121
  Receipt Date: 20040105
  Transmission Date: 20041129
  Serious: Yes (Hospitalization)
  Sender: FDA-Public Use
  Company Number: USA031255166

PATIENT
  Age: 61 Year
  Sex: Male

DRUGS (15)
  1. CIALIS [Suspect]
     Dosage: 20 MG/3 WEEK
     Dates: start: 20031208, end: 20031218
  2. PROZAC [Concomitant]
  3. SINGULAIR [Concomitant]
  4. LISINOPRIL [Concomitant]
  5. GLUCOPHAGE (METFORMN HYDROCHLORIDE) [Concomitant]
  6. ALLEGRA [Concomitant]
  7. CLARITIN [Concomitant]
  8. FLONASE [Concomitant]
  9. DILANTIN [Concomitant]
  10. PROTONIX [Concomitant]
  11. MULTI-VITAMIN [Concomitant]
  12. PLAVIX [Concomitant]
  13. ZANTAC [Concomitant]
  14. CALCIUM [Concomitant]
  15. GLUCOSAMINE CHONDROITIN [Concomitant]

REACTIONS (1)
  - PERITONSILLAR ABSCESS [None]
